FAERS Safety Report 11164352 (Version 1)
Quarter: 2015Q2

REPORT INFORMATION
  Report Type: Spontaneous
  Country: US (occurrence: US)
  Receive Date: 20150604
  Receipt Date: 20150604
  Transmission Date: 20150821
  Serious: Yes (Other)
  Sender: FDA-Public Use
  Company Number: US-BAYER-2015-301969

PATIENT
  Age: 29 Year
  Sex: Female

DRUGS (1)
  1. MIRENA [Suspect]
     Active Substance: LEVONORGESTREL
     Indication: CONTRACEPTION
     Dosage: 20 MCG/24HR, CONT
     Route: 015
     Dates: start: 201002, end: 201503

REACTIONS (12)
  - Abortion spontaneous [None]
  - Dizziness [Not Recovered/Not Resolved]
  - Abdominal pain lower [Not Recovered/Not Resolved]
  - Haemorrhage in pregnancy [Recovered/Resolved]
  - Nausea [Not Recovered/Not Resolved]
  - Genital haemorrhage [Not Recovered/Not Resolved]
  - Breast tenderness [None]
  - Vomiting in pregnancy [None]
  - Back pain [Not Recovered/Not Resolved]
  - Maternal exposure before pregnancy [None]
  - Menstruation delayed [None]
  - Food craving [None]

NARRATIVE: CASE EVENT DATE: 20150420
